FAERS Safety Report 6689115-5 (Version None)
Quarter: 2010Q2

REPORT INFORMATION
  Report Type: 
  Country: None (occurrence: None)
  Receive Date: 20100420
  Receipt Date: 20100409
  Transmission Date: 20101027
  Serious: Yes (Death, Hospitalization, Other)
  Sender: FDA-Public Use
  Company Number: US-PFIZER INC-2010045295

PATIENT
  Age: 71 Year
  Sex: Female

DRUGS (1)
  1. AMLODIPINE BESYLATE [Suspect]
     Dosage: 135 MG, SINGLE
     Route: 048

REACTIONS (7)
  - ACIDOSIS [None]
  - HYPOTENSION [None]
  - INTENTIONAL OVERDOSE [None]
  - MENTAL IMPAIRMENT [None]
  - OLIGURIA [None]
  - PULMONARY OEDEMA [None]
  - RESPIRATORY FAILURE [None]
